FAERS Safety Report 6333592-6 (Version None)
Quarter: 2009Q3

REPORT INFORMATION
  Report Type: 
  Country: None (occurrence: None)
  Receive Date: 20090829
  Receipt Date: 20090605
  Transmission Date: 20100115
  Serious: No
  Sender: FDA-Public Use
  Company Number: US-ABBOTT-09P-163-0561170-00

PATIENT
  Sex: Female
  Weight: 90.8 kg

DRUGS (7)
  1. SIMCOR [Suspect]
     Indication: BLOOD CHOLESTEROL INCREASED
     Dosage: 500/20 DAILY
     Route: 048
  2. CELEBREX [Concomitant]
     Indication: ARTHRITIS
     Route: 048
  3. ADVAIR HFA [Concomitant]
     Indication: ASTHMA
     Dosage: 110/50 2 IN 1 DAY
     Route: 055
  4. LEVOXYL [Concomitant]
     Indication: THYROIDECTOMY
     Route: 048
  5. LEVOXYL [Concomitant]
     Indication: THYROID CANCER
  6. PREMARIN [Concomitant]
     Indication: HORMONE REPLACEMENT THERAPY
     Route: 048
  7. LISINOPRIL [Concomitant]
     Indication: HYPERTENSION
     Route: 048

REACTIONS (14)
  - ABDOMINAL PAIN [None]
  - ASTHENIA [None]
  - DIARRHOEA [None]
  - DIZZINESS [None]
  - ERYTHEMA [None]
  - FLUSHING [None]
  - HYPERSENSITIVITY [None]
  - NAUSEA [None]
  - PALPITATIONS [None]
  - PRURITUS [None]
  - RASH [None]
  - SKIN BURNING SENSATION [None]
  - URTICARIA [None]
  - WHEEZING [None]
